FAERS Safety Report 8867248 (Version 1)
Quarter: 2012Q4

REPORT INFORMATION
  Report Type: 
  Country: US (occurrence: US)
  Receive Date: 20121025
  Receipt Date: 20121025
  Transmission Date: 20130627
  Serious: No
  Sender: FDA-Public Use
  Company Number: US-AMGEN-USASP2012015574

PATIENT
  Age: 63 Year
  Sex: Female

DRUGS (8)
  1. ENBREL [Suspect]
     Indication: PRODUCT USED FOR UNKNOWN INDICATION
     Dosage: 50 mg, qwk
     Route: 058
  2. FOLIC ACID [Concomitant]
     Dosage: UNK
  3. PREDNISONE [Concomitant]
     Dosage: 1 mg, UNK
  4. METHOTREXATE [Concomitant]
     Dosage: 2.5 mg, UNK
  5. FOSAMAX [Concomitant]
     Dosage: 10 mg, UNK
  6. PROAIR HFA [Concomitant]
     Dosage: UNK
  7. CALTRATE WITH VITAMIN D [Concomitant]
     Dosage: UNK
  8. NAPROXEN [Concomitant]
     Dosage: 250 mg, UNK

REACTIONS (1)
  - Injection site erythema [Unknown]
